FAERS Safety Report 4359204-9 (Version None)
Quarter: 2004Q2

REPORT INFORMATION
  Report Type: 
  Country: None (occurrence: None)
  Receive Date: 20040512
  Receipt Date: 20040227
  Transmission Date: 20050107
  Serious: Yes (Hospitalization)
  Sender: FDA-Public Use
  Company Number: 2003184906JP

PATIENT
  Age: 83 Year
  Sex: Female
  Weight: 36 kg

DRUGS (6)
  1. ALDACTONE [Suspect]
     Indication: URINARY RETENTION
     Dosage: 75 MG, DAILY, ORAL
     Route: 048
     Dates: start: 20030930, end: 20031021
  2. TAKEPRON [Concomitant]
  3. BERIZYM (ENZYMES NOS) [Concomitant]
  4. POLYCARBOPHIL CALCIUM (POLYCARBOPHIL CALCIUM) [Concomitant]
  5. CEREKINON (TRIMEBUTINE MALEATE) [Concomitant]
  6. EBRANTIL (URAPIDIL) [Concomitant]

REACTIONS (8)
  - DIARRHOEA [None]
  - DISCOMFORT [None]
  - HYPOKALAEMIA [None]
  - HYPONATRAEMIA [None]
  - NAUSEA [None]
  - TREMOR [None]
  - VOMITING [None]
  - WEIGHT DECREASED [None]
